FAERS Safety Report 7459400-8 (Version None)
Quarter: 2011Q2

REPORT INFORMATION
  Report Type: 
  Country: None (occurrence: None)
  Receive Date: 20110505
  Receipt Date: 20110420
  Transmission Date: 20111010
  Serious: Yes (Other)
  Sender: FDA-Public Use
  Company Number: JP-JNJFOC-20110411550

PATIENT
  Sex: Female

DRUGS (15)
  1. PANTHENOL [Concomitant]
     Route: 065
  2. VICCLOX [Concomitant]
     Route: 065
  3. ALEVIATIN [Concomitant]
     Route: 065
  4. TEGRETOL [Concomitant]
     Route: 048
  5. TAKEPRON [Concomitant]
     Route: 048
  6. LENDORMIN [Concomitant]
     Route: 048
  7. ZOSYN [Concomitant]
     Route: 065
  8. TOPINA [Suspect]
     Indication: EPILEPSY
     Route: 048
  9. GASTER [Concomitant]
     Route: 065
  10. ROCEPHIN [Concomitant]
     Route: 065
  11. VICCILLIN S [Concomitant]
     Route: 065
  12. ALEVIATIN [Concomitant]
     Route: 048
  13. TOPINA [Suspect]
     Route: 048
  14. VANCOMYCIN [Concomitant]
     Route: 065
  15. POTASSIUM-ASPARTATE [Concomitant]
     Route: 048

REACTIONS (1)
  - RESPIRATORY FAILURE [None]
